FAERS Safety Report 4470086-7 (Version None)
Quarter: 2004Q3

REPORT INFORMATION
  Report Type: 
  Country: None (occurrence: None)
  Receive Date: 20040910
  Receipt Date: 20040806
  Transmission Date: 20050211
  Serious: No
  Sender: FDA-Public Use
  Company Number: 2004228218US

PATIENT
  Sex: Female
  Weight: 48.1 kg

DRUGS (9)
  1. BEXTRA [Suspect]
     Indication: OSTEOARTHRITIS
     Dosage: ORAL
     Route: 048
  2. IBUPROFEN [Concomitant]
  3. GLUCOSAMINE [Concomitant]
  4. MIACALCIN [Concomitant]
  5. E-VISTA (HYDROXYZINE HYDROCHLORIDE) [Concomitant]
  6. LEXAPRO [Concomitant]
  7. LEVOTHROID [Concomitant]
  8. DICYCLOMINE HYDROCHLORIDE (DICYCLOVIERINE HYDROCHLORIDE) [Concomitant]
  9. CHLORDIAZEPOXIDE [Concomitant]

REACTIONS (1)
  - UNEVALUABLE EVENT [None]
